FAERS Safety Report 11540576 (Version 1)
Quarter: 2015Q3

REPORT INFORMATION
  Report Type: Spontaneous
  Country: US (occurrence: US)
  Receive Date: 20150923
  Receipt Date: 20150923
  Transmission Date: 20151125
  Serious: No
  Sender: FDA-Public Use
  Company Number: US-BEH-2015050231

PATIENT
  Sex: Male
  Weight: 121 kg

DRUGS (17)
  1. SODIUM CHLORIDE. [Concomitant]
     Active Substance: SODIUM CHLORIDE
  2. ASPIRIN. [Concomitant]
     Active Substance: ASPIRIN
  3. VITAMIN C [Concomitant]
     Active Substance: ASCORBIC ACID
  4. HYZAAR [Concomitant]
     Active Substance: HYDROCHLOROTHIAZIDE\LOSARTAN POTASSIUM
  5. MULTIVITAMINS [Concomitant]
     Active Substance: VITAMINS
  6. FISH OIL [Concomitant]
     Active Substance: FISH OIL
  7. OMEGA 3-6-9 FATTY ACIDS [Concomitant]
  8. ACETAMINOPHEN. [Concomitant]
     Active Substance: ACETAMINOPHEN
  9. NORMAL SALINE [Concomitant]
     Active Substance: SODIUM CHLORIDE
  10. LIPITOR [Concomitant]
     Active Substance: ATORVASTATIN CALCIUM
  11. HEPARIN [Concomitant]
     Active Substance: HEPARIN SODIUM
     Dosage: 100 UNITS/ML
  12. PRIVIGEN [Suspect]
     Active Substance: HUMAN IMMUNOGLOBULIN G
     Indication: HYPOGAMMAGLOBULINAEMIA
     Route: 042
  13. OMEPRAZOLE. [Concomitant]
     Active Substance: OMEPRAZOLE
  14. CARVEDILOL. [Concomitant]
     Active Substance: CARVEDILOL
  15. NORVASC [Concomitant]
     Active Substance: AMLODIPINE BESYLATE
  16. DIPHENHYDRAMINE. [Concomitant]
     Active Substance: DIPHENHYDRAMINE
  17. EPINEPHRINE. [Concomitant]
     Active Substance: EPINEPHRINE

REACTIONS (4)
  - Muscle spasms [Unknown]
  - Chills [Unknown]
  - Nausea [Unknown]
  - Incorrect drug administration rate [Unknown]
